FAERS Safety Report 4986439-4 (Version None)
Quarter: 2006Q2

REPORT INFORMATION
  Report Type: 
  Country: None (occurrence: None)
  Receive Date: 20060424
  Receipt Date: 20060413
  Transmission Date: 20061013
  Serious: Yes (Hospitalization)
  Sender: FDA-Public Use
  Company Number: CHNY2006SE01292

PATIENT
  Age: 74 Year
  Sex: Male

DRUGS (9)
  1. SCOPODERM TTS [Suspect]
     Indication: SALIVARY HYPERSECRETION
     Dosage: 1 MG, Q96H
     Route: 062
     Dates: start: 20051125, end: 20060104
  2. HEMINEVRIN (CLOMETHIAZOLE EDISILATE) [Concomitant]
  3. METHOTREXATE [Concomitant]
  4. FOLACIN (CALCIUM PHOSPHATE, FOLIC ACID) [Concomitant]
  5. BEHEPAN (CYANOCOBALAMIN) [Concomitant]
  6. PREDNISOLONE [Concomitant]
  7. FLUDENT (SODIUM FLUORIDE) [Concomitant]
  8. ASPIRIN [Concomitant]
  9. VISCOTEARS (CARBOMER) [Concomitant]

REACTIONS (4)
  - ABNORMAL BEHAVIOUR [None]
  - AGGRESSION [None]
  - AGITATION [None]
  - HALLUCINATION [None]
